FAERS Safety Report 5288817-5 (Version None)
Quarter: 2007Q2

REPORT INFORMATION
  Report Type: 
  Country: None (occurrence: None)
  Receive Date: 20070405
  Receipt Date: 20070327
  Transmission Date: 20071010
  Serious: Yes (Hospitalization)
  Sender: FDA-Public Use
  Company Number: CA-ABBOTT-07P-028-0361888-00

PATIENT
  Sex: Male
  Weight: 53.572 kg

DRUGS (1)
  1. KALETRA [Suspect]
     Indication: HIV INFECTION
     Route: 048
     Dates: start: 20061019

REACTIONS (3)
  - LEGAL PROBLEM [None]
  - RADIUS FRACTURE [None]
  - ULNA FRACTURE [None]
